FAERS Safety Report 5661616-8 (Version None)
Quarter: 2008Q1

REPORT INFORMATION
  Report Type: 
  Country: None (occurrence: None)
  Receive Date: 20080312
  Receipt Date: 20080304
  Transmission Date: 20080703
  Serious: Yes (Other)
  Sender: FDA-Public Use
  Company Number: PHMT2008CA00468

PATIENT
  Sex: Male

DRUGS (2)
  1. ARANESP [Suspect]
  2. EXJADE [Suspect]
     Indication: HAEMOSIDEROSIS
     Dosage: 1500 MG, QD
     Route: 048

REACTIONS (5)
  - ASCITES [None]
  - CONDITION AGGRAVATED [None]
  - IRON OVERLOAD [None]
  - PORTAL HYPERTENSION [None]
  - SPLENOMEGALY [None]
